FAERS Safety Report 5826377-8 (Version None)
Quarter: 2008Q3

REPORT INFORMATION
  Report Type: 
  Country: None (occurrence: None)
  Receive Date: 20080729
  Receipt Date: 20080725
  Transmission Date: 20090109
  Serious: Yes (Other)
  Sender: FDA-Public Use
  Company Number: US-BOEHRINGER INGELHEIM GMBH, GERMANY-2008-BP-09074PF

PATIENT
  Sex: Female
  Weight: 54.4 kg

DRUGS (12)
  1. SPIRIVA [Suspect]
     Indication: DYSPNOEA
     Dates: end: 20080101
  2. CHANTIX [Suspect]
     Indication: SMOKING CESSATION THERAPY
  3. HIGH BLOOD PRESSURE MEDICATION [Concomitant]
  4. HYDROCHLOROTHIAZIDE [Concomitant]
  5. VALIUM [Concomitant]
  6. UNSPECIFIED THYROID MEDICATION [Concomitant]
  7. CELEBREX [Concomitant]
  8. VESICARE [Concomitant]
     Dates: end: 20080101
  9. ROXICET [Concomitant]
  10. CARCIA [Concomitant]
  11. OMEPRAZOLE [Concomitant]
  12. LEVOTHYROXINE SODIUM [Concomitant]

REACTIONS (6)
  - BLADDER DISORDER [None]
  - DRUG INEFFECTIVE [None]
  - DYSPNOEA [None]
  - NAUSEA [None]
  - POST PROCEDURAL COMPLICATION [None]
  - WEIGHT DECREASED [None]
